FAERS Safety Report 7361763-9 (Version None)
Quarter: 2011Q1

REPORT INFORMATION
  Report Type: 
  Country: None (occurrence: None)
  Receive Date: 20110318
  Receipt Date: 20110310
  Transmission Date: 20110831
  Serious: Yes (Other)
  Sender: FDA-Public Use
  Company Number: US-MERCK-0909USA01537

PATIENT
  Age: 30 Year
  Sex: Female
  Weight: 43 kg

DRUGS (6)
  1. FOSAMAX [Suspect]
     Indication: OSTEOPOROSIS
     Route: 048
     Dates: start: 20010101, end: 20060101
  2. PREMARIN [Concomitant]
     Indication: HORMONE REPLACEMENT THERAPY
     Route: 048
  3. TOPROL-XL [Concomitant]
     Indication: ARRHYTHMIA
     Route: 048
     Dates: start: 19920101
  4. PROVERA [Concomitant]
     Indication: HORMONE REPLACEMENT THERAPY
     Route: 048
  5. BONIVA [Suspect]
     Indication: OSTEOPOROSIS
     Route: 048
     Dates: start: 20060101, end: 20081001
  6. TOPROL-XL [Concomitant]
     Indication: TACHYCARDIA
     Route: 048
     Dates: start: 19920101

REACTIONS (36)
  - BREAST DISORDER [None]
  - VOMITING [None]
  - DYSURIA [None]
  - INSOMNIA [None]
  - PYELONEPHRITIS [None]
  - BLOOD PARATHYROID HORMONE DECREASED [None]
  - ANXIETY [None]
  - DEPRESSION [None]
  - GASTROOESOPHAGEAL REFLUX DISEASE [None]
  - NAUSEA [None]
  - MUSCLE STRAIN [None]
  - TOOTH DISORDER [None]
  - STRESS URINARY INCONTINENCE [None]
  - SINUSITIS [None]
  - PYELONEPHRITIS ACUTE [None]
  - DYSPEPSIA [None]
  - DYSPLASIA [None]
  - CERVICAL DYSPLASIA [None]
  - HYPERSENSITIVITY [None]
  - BLADDER SPASM [None]
  - OSTEONECROSIS OF JAW [None]
  - MAJOR DEPRESSION [None]
  - URGE INCONTINENCE [None]
  - CARPAL TUNNEL SYNDROME [None]
  - BRUXISM [None]
  - BIPOLAR II DISORDER [None]
  - HERPES SIMPLEX [None]
  - AFFECTIVE DISORDER [None]
  - MIGRAINE [None]
  - WEIGHT DECREASED [None]
  - PAIN [None]
  - ANAEMIA [None]
  - BUNION [None]
  - PAPILLOMA VIRAL INFECTION [None]
  - STOMATITIS [None]
  - URINARY TRACT INFECTION [None]
